FAERS Safety Report 8847530 (Version 3)
Quarter: 2012Q4

REPORT INFORMATION
  Report Type: 
  Country: US (occurrence: US)
  Receive Date: 20121018
  Receipt Date: 20121204
  Transmission Date: 20130627
  Serious: Yes (Hospitalization, Other)
  Sender: FDA-Public Use
  Company Number: US-ALEXION PHARMACEUTICALS INC.-A201201824

PATIENT
  Age: 76 Year
  Sex: Male
  Weight: 109 kg

DRUGS (4)
  1. SOLIRIS 300MG [Suspect]
     Indication: HAEMOLYTIC URAEMIC SYNDROME
     Dosage: 900 mg, qw
     Route: 042
     Dates: start: 20120922
  2. ARANESP [Concomitant]
     Indication: ANAEMIA
     Dosage: UNK
  3. FLUCONAZOLE [Concomitant]
     Indication: GROIN INFECTION
     Dosage: UNK
  4. METOPROLOL [Concomitant]
     Indication: HYPERTENSION
     Dosage: UNK

REACTIONS (3)
  - Bacteraemia [Unknown]
  - Increased upper airway secretion [Recovering/Resolving]
  - Haemoglobin decreased [Not Recovered/Not Resolved]
